FAERS Safety Report 5393030-7 (Version None)
Quarter: 2007Q3

REPORT INFORMATION
  Report Type: 
  Country: None (occurrence: None)
  Receive Date: 20070719
  Receipt Date: 20070712
  Transmission Date: 20080115
  Serious: Yes (Hospitalization)
  Sender: FDA-Public Use
  Company Number: 2007SP014086

PATIENT
  Age: 58 Year
  Sex: Male
  Weight: 80 kg

DRUGS (7)
  1. DESLORATADINE [Suspect]
     Indication: RHINITIS
     Dosage: PO
     Route: 048
     Dates: end: 20070511
  2. ALLERGODIL [Suspect]
     Indication: RHINITIS
     Dosage: 0.127 MG; NAS
     Route: 045
     Dates: start: 20070401, end: 20070511
  3. CHONDROSULF (CHONDROITIN SULFATE SODUUM [Suspect]
     Indication: OSTEOARTHRITIS
     Dosage: 400 MGL TID
     Dates: end: 20070511
  4. SOLACY (SOLACY) [Suspect]
     Indication: RHINITIS
     Dosage: PO
     Route: 048
     Dates: end: 20070511
  5. INDAPAMIDE [Suspect]
     Dosage: PO
     Route: 048
     Dates: start: 20060815, end: 20070511
  6. NEXIUM [Suspect]
     Dosage: 40 MG;QD; PO
     Route: 048
     Dates: start: 20070101
  7. FLECAINIDE ACETATE [Concomitant]

REACTIONS (3)
  - ANGIOIMMUNOBLASTIC T-CELL LYMPHOMA [None]
  - PURPURA [None]
  - THROMBOCYTOPENIA [None]
